FAERS Safety Report 18572003 (Version 1)
Quarter: 2020Q4

REPORT INFORMATION
  Report Type: Report from Study
  Country: CA (occurrence: CA)
  Receive Date: 20201202
  Receipt Date: 20201202
  Transmission Date: 20210114
  Serious: Yes (Other)
  Sender: FDA-Public Use
  Company Number: CA-HLS-202006528

PATIENT
  Age: 31 Year
  Sex: Male
  Weight: 55 kg

DRUGS (23)
  1. GRAVOL [Concomitant]
     Active Substance: DIMENHYDRINATE
     Dosage: 50MG, 1 TAB EVERY 4 - 6HRS PRN
     Route: 065
     Dates: start: 20201110
  2. SYNTHROID [Concomitant]
     Active Substance: LEVOTHYROXINE SODIUM
     Dosage: 1 TABLET = 50MCG ONCE A DAY
     Route: 065
     Dates: start: 20201110
  3. PERIDEX [Concomitant]
     Active Substance: CHLORHEXIDINE GLUCONATE
     Dosage: UNKNOWN
     Route: 048
  4. HYDERM [Concomitant]
     Dosage: 1% CREAM. APPLY LOCALLY 2X A DAY PRN
     Route: 065
     Dates: start: 20201110
  5. BIPHENTIN [Concomitant]
     Active Substance: METHYLPHENIDATE
     Dosage: 1 CAP=16MG 1X A DAY AT BREAKFAST
     Route: 065
     Dates: start: 20201110
  6. COGENTIN [Concomitant]
     Active Substance: BENZTROPINE MESYLATE
     Dosage: 1MG TAB, X2 DAILY
     Route: 065
  7. LOXAPAC [Concomitant]
     Active Substance: LOXAPINE
     Dosage: 1 TAB =10MG 3X A DAY PRN
     Route: 065
     Dates: start: 20201110
  8. VENTOLIN [Concomitant]
     Active Substance: ALBUTEROL SULFATE
     Dosage: 2-4 INHALATIONS= 200-400MCG 4X A DAY PRN
     Route: 065
     Dates: start: 20201110
  9. RIVOTRIL [Concomitant]
     Active Substance: CLONAZEPAM
     Dosage: 1TAB = 0.5 MG 2X A DAY IN THE MORNING AND AFTERNOON.
     Route: 065
  10. HYROXYPROPYLMETHYLCELLULOSE [Concomitant]
     Dosage: 0.5%, 1-2 DROPLETS IN THE EYES 4X A DAY
     Route: 065
     Dates: start: 20201110
  11. CLOZARIL [Suspect]
     Active Substance: CLOZAPINE
     Indication: PRODUCT USED FOR UNKNOWN INDICATION
     Dosage: UNKNOWN
     Route: 048
     Dates: start: 20201021, end: 20201119
  12. TYLENOL [Concomitant]
     Active Substance: ACETAMINOPHEN
     Dosage: 325MG, 2 TABS QHRS
     Route: 065
     Dates: start: 20201110
  13. BETAMETHASONE DIPROPIONATE. [Concomitant]
     Active Substance: BETAMETHASONE DIPROPIONATE
     Dosage: 0.05% POMADE,  FOR LOCAL APPLICATION 2X A DAY PRN, IN THE HANDS
     Route: 065
     Dates: start: 20201110
  14. CATAPRES [Concomitant]
     Active Substance: CLONIDINE HYDROCHLORIDE
     Dosage: 0.1MG X3 A DAY
     Route: 065
     Dates: start: 20201110
  15. GLYCERINE [Concomitant]
     Active Substance: GLYCERIN
     Dosage: 1 SUPPOSITORY, INTRA-RECTAL, 1X A DAY PRN
     Route: 065
     Dates: start: 20201110
  16. COLACE [Concomitant]
     Active Substance: DOCUSATE SODIUM
     Dosage: 1 CAPSULE= 100MG 2X A DAY
     Route: 065
     Dates: start: 20201110
  17. MONOCOR [Concomitant]
     Active Substance: BISOPROLOL FUMARATE
     Dosage: HALF TAB ONCE A DAY
     Route: 065
     Dates: start: 20201110
  18. GLAXAL-BASE [Concomitant]
     Dosage: FOR LOCAL APPLICATION, X1 DAILY
     Route: 065
  19. ATIVAN [Concomitant]
     Active Substance: LORAZEPAM
     Dosage: 1 TABLET = 50MCG ONCE A DAY, PRN
     Route: 065
     Dates: start: 20201110
  20. MINOCIN [Concomitant]
     Active Substance: MINOCYCLINE HYDROCHLORIDE
     Dosage: 2 CAPSULES = 100MG 1X A DAY
     Route: 065
     Dates: start: 20201110
  21. RISPERDAL [Concomitant]
     Active Substance: RISPERIDONE
     Dosage: 1 TAB = 1MG 1X A DAY AT SUPER
     Route: 065
     Dates: start: 20201110, end: 20201130
  22. SENOKOT [Concomitant]
     Active Substance: SENNOSIDES
     Dosage: 1 TAB = 8.6MG 2X A DAY PRN
     Route: 065
     Dates: start: 20201110
  23. DEYSREL [Concomitant]
     Dosage: 1TAB, 1X A DAY
     Route: 065
     Dates: start: 20201110

REACTIONS (19)
  - Pneumonia aspiration [Unknown]
  - Erythema [Unknown]
  - Dysphagia [Unknown]
  - C-reactive protein increased [Unknown]
  - Eosinophil count increased [Unknown]
  - Basophil count increased [Unknown]
  - Somnolence [Unknown]
  - Red blood cell count decreased [Unknown]
  - Body temperature increased [Not Recovered/Not Resolved]
  - Monocyte count increased [Unknown]
  - Haematocrit decreased [Unknown]
  - Regurgitation [Unknown]
  - Attention deficit hyperactivity disorder [Unknown]
  - Troponin increased [Unknown]
  - Haemoglobin decreased [Unknown]
  - Myocarditis [Unknown]
  - Nasal congestion [Not Recovered/Not Resolved]
  - Dizziness [Unknown]
  - Eosinophil count increased [Unknown]

NARRATIVE: CASE EVENT DATE: 20201028
